FAERS Safety Report 15425621 (Version 11)
Quarter: 2021Q4

REPORT INFORMATION
  Report Type: Spontaneous
  Country: CA (occurrence: CA)
  Receive Date: 20180925
  Receipt Date: 20211122
  Transmission Date: 20220303
  Serious: Yes (Hospitalization, Other)
  Sender: FDA-Public Use
  Company Number: CA-PFIZER INC-2018152333

PATIENT
  Age: 63 Year
  Sex: Male

DRUGS (6)
  1. XELJANZ [Suspect]
     Active Substance: TOFACITINIB CITRATE
     Indication: Rheumatoid arthritis
     Dosage: 5 MG, 1X/DAY
     Route: 048
     Dates: start: 20180318, end: 20180906
  2. XELJANZ [Suspect]
     Active Substance: TOFACITINIB CITRATE
     Dosage: 5 MG, 2X/DAY
     Route: 048
     Dates: start: 20181004
  3. SULFASALAZINE [Concomitant]
     Active Substance: SULFASALAZINE
     Indication: Rheumatoid arthritis
     Dosage: 1000 MG, 2X/DAY
     Route: 048
     Dates: start: 20140626
  4. CELEBREX [Concomitant]
     Active Substance: CELECOXIB
     Indication: Pain
     Dosage: UNK, AS NEEDED
  5. CELEBREX [Concomitant]
     Active Substance: CELECOXIB
     Dosage: 1 DF, PRN
     Route: 065
  6. HYDROXYCHLOROQUINE [Concomitant]
     Active Substance: HYDROXYCHLOROQUINE
     Indication: Rheumatoid arthritis
     Dosage: 400 MG, DAILY
     Route: 048
     Dates: start: 20141001

REACTIONS (8)
  - Angioedema [Unknown]
  - Umbilical hernia [Recovering/Resolving]
  - Drug ineffective [Recovered/Resolved]
  - Chondropathy [Unknown]
  - Gait disturbance [Unknown]
  - Joint dislocation [Unknown]
  - Synovitis [Not Recovered/Not Resolved]
  - Postoperative wound complication [Recovering/Resolving]

NARRATIVE: CASE EVENT DATE: 20180901
